FAERS Safety Report 10242368 (Version 1)
Quarter: 2014Q2

REPORT INFORMATION
  Report Type: Spontaneous
  Country: US (occurrence: US)
  Receive Date: 20140617
  Receipt Date: 20140617
  Transmission Date: 20141212
  Serious: No
  Sender: FDA-Public Use
  Company Number: US-GILEAD-2014-0105501

PATIENT
  Age: 53 Year
  Sex: Female

DRUGS (6)
  1. LETAIRIS [Suspect]
     Indication: PULMONARY ARTERIAL HYPERTENSION
     Dosage: 10 MG, QD
     Route: 065
     Dates: start: 20140421, end: 20140519
  2. SILDENAFIL [Concomitant]
     Route: 065
  3. LIPITOR [Concomitant]
     Route: 065
  4. WARFARIN [Concomitant]
     Route: 065
  5. LASIX                              /00032601/ [Concomitant]
     Route: 065
  6. ALBUTEROL                          /00139501/ [Concomitant]
     Route: 065

REACTIONS (1)
  - Migraine [Recovered/Resolved]
